FAERS Safety Report 8008947-4 (Version None)
Quarter: 2011Q4

REPORT INFORMATION
  Report Type: 
  Country: None (occurrence: None)
  Receive Date: 20111227
  Receipt Date: 20111221
  Transmission Date: 20120403
  Serious: Yes (Other)
  Sender: FDA-Public Use
  Company Number: US-ROCHE-784118

PATIENT
  Sex: Female
  Weight: 70.37 kg

DRUGS (6)
  1. ACCUTANE [Suspect]
     Indication: HIDRADENITIS
  2. MINOCYCLINE HCL [Concomitant]
  3. ACCUTANE [Suspect]
     Indication: ACNE
     Route: 065
     Dates: start: 20000401, end: 20000801
  4. ERY-TAB [Concomitant]
  5. LEVAQUIN [Concomitant]
  6. AZELEX [Concomitant]

REACTIONS (8)
  - INFLAMMATORY BOWEL DISEASE [None]
  - CHAPPED LIPS [None]
  - DEPRESSION [None]
  - DRY SKIN [None]
  - BLOOD CHOLESTEROL INCREASED [None]
  - STRESS [None]
  - BLOOD TRIGLYCERIDES INCREASED [None]
  - COLITIS ULCERATIVE [None]
